FAERS Safety Report 8771856 (Version 3)
Quarter: 2012Q4

REPORT INFORMATION
  Report Type: 
  Country: US (occurrence: US)
  Receive Date: 20120906
  Receipt Date: 20121212
  Transmission Date: 20130627
  Serious: Yes (Other)
  Sender: FDA-Public Use
  Company Number: US-JNJFOC-20120814104

PATIENT
  Sex: Female
  Weight: 63.5 kg

DRUGS (12)
  1. FLEXERIL [Suspect]
     Indication: MUSCLE SPASMS
     Route: 048
     Dates: end: 2011
  2. FLEXERIL [Suspect]
     Indication: MUSCLE SPASMS
     Dosage: started 28 years back
     Route: 048
     Dates: start: 1984
  3. UNSPECIFIED [Suspect]
     Indication: PRODUCT USED FOR UNKNOWN INDICATION
     Route: 065
  4. LYRICA [Suspect]
     Indication: FIBROMYALGIA
     Route: 065
  5. GABAPENTIN [Suspect]
     Indication: FIBROMYALGIA
     Route: 065
  6. CYMBALTA [Suspect]
     Indication: FIBROMYALGIA
     Route: 048
  7. AMRIX [Suspect]
     Indication: MUSCLE SPASMS
     Dosage: 60 mg/tablet
     Route: 048
     Dates: start: 2011
  8. CYCLOBENZAPRINE HYDROCHLORIDE [Suspect]
     Indication: MUSCLE SPASMS
     Route: 048
  9. FIORICET [Concomitant]
     Indication: HEADACHE
     Dosage: 50-325-40 mg/ 3-4 day
     Route: 065
  10. OXYCONTIN [Concomitant]
     Indication: PAIN
     Dosage: 80 and then 20 mg
     Route: 065
  11. PREDNISOLONE [Concomitant]
     Indication: IMMUNE SYSTEM DISORDER
     Route: 065
  12. CANNABIS SATIVA SUBSP. INDICA TOP [Concomitant]
     Route: 065

REACTIONS (17)
  - Osteoarthritis [Not Recovered/Not Resolved]
  - Haemorrhage [Recovered/Resolved]
  - Fibromyalgia [Not Recovered/Not Resolved]
  - Epstein-Barr virus infection [Not Recovered/Not Resolved]
  - Immune system disorder [Not Recovered/Not Resolved]
  - Weight increased [Not Recovered/Not Resolved]
  - Nasopharyngitis [Recovered/Resolved]
  - Hypersomnia [Recovered/Resolved]
  - Drug ineffective [Not Recovered/Not Resolved]
  - Malaise [Recovered/Resolved]
  - Hypersensitivity [Recovered/Resolved]
  - Swelling [Not Recovered/Not Resolved]
  - Drug intolerance [Not Recovered/Not Resolved]
  - Oedema [Not Recovered/Not Resolved]
  - Incorrect dose administered [Recovered/Resolved]
  - Insomnia [Not Recovered/Not Resolved]
  - Joint dislocation [Recovered/Resolved]
